FAERS Safety Report 18268800 (Version 4)
Quarter: 2020Q3

REPORT INFORMATION
  Report Type: Spontaneous
  Country: US (occurrence: US)
  Receive Date: 20200915
  Receipt Date: 20200921
  Transmission Date: 20201103
  Serious: No
  Sender: FDA-Public Use
  Company Number: US-PFIZER INC-2020347659

PATIENT
  Age: 54 Year
  Sex: Male
  Weight: 88.45 kg

DRUGS (6)
  1. ALPRAZOLAM. [Suspect]
     Active Substance: ALPRAZOLAM
     Dosage: 2 MG
  2. OXYCODONE [Concomitant]
     Active Substance: OXYCODONE
     Dosage: MAXIMUM OF TWO 10MG TABLETS DAILY
  3. ALPRAZOLAM. [Suspect]
     Active Substance: ALPRAZOLAM
     Indication: ANXIETY
     Dosage: UNK (TOOK HALF OF THE PILL)
     Dates: start: 20200905
  4. ALPRAZOLAM. [Suspect]
     Active Substance: ALPRAZOLAM
     Dosage: 1 MG(TAKES HALF OF A 2MG TABLET)
  5. OXYCODONE [Concomitant]
     Active Substance: OXYCODONE
     Dosage: 10 MG, 1X/DAY(TAKES 10MG DURING THE DAY)
  6. ALPRAZOLAM. [Suspect]
     Active Substance: ALPRAZOLAM
     Indication: POST-TRAUMATIC STRESS DISORDER
     Dosage: UNK

REACTIONS (6)
  - Drug ineffective [Unknown]
  - Suspected counterfeit product [Unknown]
  - Insomnia [Unknown]
  - Off label use [Unknown]
  - Intentional product misuse [Unknown]
  - Depression [Unknown]

NARRATIVE: CASE EVENT DATE: 20200905
